FAERS Safety Report 13447077 (Version 2)
Quarter: 2017Q3

REPORT INFORMATION
  Report Type: Spontaneous
  Country: US (occurrence: US)
  Receive Date: 20170417
  Receipt Date: 20170714
  Transmission Date: 20171127
  Serious: No
  Sender: FDA-Public Use
  Company Number: US-PFIZER INC-2017166448

PATIENT
  Age: 59 Year
  Sex: Male
  Weight: 53.7 kg

DRUGS (2)
  1. GABAPENTIN. [Suspect]
     Active Substance: GABAPENTIN
     Indication: NEUROPATHY PERIPHERAL
     Dosage: 3 DF, 3X/DAY, 9 PILLS A DAY, THREE IN THE MORNING, THREE AT LUNCH AND THREE AT NIGHT
  2. GABAPENTIN. [Suspect]
     Active Substance: GABAPENTIN
     Dosage: 900 MG, DAILY

REACTIONS (1)
  - Drug ineffective for unapproved indication [Unknown]
